FAERS Safety Report 5534108-4 (Version None)
Quarter: 2007Q4

REPORT INFORMATION
  Report Type: 
  Country: None (occurrence: None)
  Receive Date: 20071129
  Receipt Date: 20071129
  Transmission Date: 20080405
  Serious: Yes (Other)
  Sender: FDA-Public Use
  Company Number: None

PATIENT
  Age: 41 Year
  Sex: Male
  Weight: 108.8633 kg

DRUGS (3)
  1. NARDIL [Suspect]
     Indication: DEPRESSION
     Dosage: 30 MG T.I.D. PO
     Route: 048
     Dates: start: 19930401, end: 20071125
  2. NARDIL [Suspect]
     Indication: GENERALISED ANXIETY DISORDER
     Dosage: 30 MG T.I.D. PO
     Route: 048
     Dates: start: 19930401, end: 20071125
  3. NARDIL [Suspect]
     Indication: SOCIAL PHOBIA
     Dosage: 30 MG T.I.D. PO
     Route: 048
     Dates: start: 19930401, end: 20071125

REACTIONS (4)
  - DEPRESSION [None]
  - DISEASE RECURRENCE [None]
  - DRUG INEFFECTIVE [None]
  - PHARMACEUTICAL PRODUCT COMPLAINT [None]
